FAERS Safety Report 25233736 (Version 2)
Quarter: 2025Q2

REPORT INFORMATION
  Report Type: Report from Study
  Country: US (occurrence: US)
  Receive Date: 20250424
  Receipt Date: 20250429
  Transmission Date: 20250717
  Serious: Yes (Other)
  Sender: CSL BEHRING
  Company Number: US-BEH-2025197897

PATIENT
  Age: 30 Year
  Sex: Female
  Weight: 53.968 kg

DRUGS (6)
  1. BERINERT [Suspect]
     Active Substance: HUMAN C1-ESTERASE INHIBITOR
     Indication: Hereditary angioedema
     Dosage: 3300 IU/KG, BIW
     Route: 058
  2. BERINERT [Suspect]
     Active Substance: HUMAN C1-ESTERASE INHIBITOR
     Indication: Prophylaxis
     Dosage: 3300 IU/KG, BIW
     Route: 058
     Dates: end: 20250416
  3. BERINERT [Suspect]
     Active Substance: HUMAN C1-ESTERASE INHIBITOR
     Indication: Hereditary angioedema
     Route: 058
     Dates: start: 20250124
  4. BERINERT [Suspect]
     Active Substance: HUMAN C1-ESTERASE INHIBITOR
     Indication: Prophylaxis
     Route: 065
  5. BERINERT [Suspect]
     Active Substance: HUMAN C1-ESTERASE INHIBITOR
     Dosage: 4000 IU/KG, BIW
     Route: 058
  6. HAEGARDA [Suspect]
     Active Substance: HUMAN C1-ESTERASE INHIBITOR
     Indication: Product used for unknown indication
     Route: 058

REACTIONS (11)
  - Hereditary angioedema [Not Recovered/Not Resolved]
  - Hereditary angioedema [Unknown]
  - Hereditary angioedema [Not Recovered/Not Resolved]
  - Hereditary angioedema [Recovering/Resolving]
  - Insurance issue [Unknown]
  - Insurance issue [Unknown]
  - Malaise [Unknown]
  - Insurance issue [Unknown]
  - Product use issue [Not Recovered/Not Resolved]
  - Product dose omission issue [Recovering/Resolving]
  - Insurance issue [Unknown]

NARRATIVE: CASE EVENT DATE: 20250301
